FAERS Safety Report 11861643 (Version 1)
Quarter: 2015Q4

REPORT INFORMATION
  Report Type: Spontaneous
  Country: US (occurrence: US)
  Receive Date: 20151222
  Receipt Date: 20151222
  Transmission Date: 20160305
  Serious: Yes (Other)
  Sender: FDA-Public Use
  Company Number: US-SA-2015SA212393

PATIENT
  Age: 55 Year
  Sex: Female

DRUGS (1)
  1. ALLEGRA ALLERGY [Suspect]
     Active Substance: FEXOFENADINE HYDROCHLORIDE
     Indication: MULTIPLE ALLERGIES
     Dosage: START DATE: MORE THAN 10 YEARS
     Route: 048

REACTIONS (9)
  - Lactose intolerance [Unknown]
  - Extra dose administered [Unknown]
  - Gallbladder disorder [Unknown]
  - Headache [Unknown]
  - Stomatitis [Unknown]
  - Hypertension [Unknown]
  - Dry mouth [Unknown]
  - Gastrooesophageal reflux disease [Unknown]
  - Irritable bowel syndrome [Unknown]

NARRATIVE: CASE EVENT DATE: 2012
